FAERS Safety Report 8101747-6 (Version None)
Quarter: 2012Q1

REPORT INFORMATION
  Report Type: 
  Country: None (occurrence: None)
  Receive Date: 20120131
  Receipt Date: 20120120
  Transmission Date: 20120608
  Serious: Yes (Other)
  Sender: FDA-Public Use
  Company Number: PHEH2012US001938

PATIENT
  Sex: Male

DRUGS (1)
  1. AFINITOR [Suspect]
     Indication: RENAL CANCER
     Dosage: 5 MG, QD

REACTIONS (5)
  - CONVULSION [None]
  - BRAIN NEOPLASM MALIGNANT [None]
  - HYPERTENSION [None]
  - NEOPLASM PROGRESSION [None]
  - EPILEPSY [None]
